FAERS Safety Report 21527225 (Version 2)
Quarter: 2022Q4

REPORT INFORMATION
  Report Type: Spontaneous
  Country: US (occurrence: US)
  Receive Date: 20221031
  Receipt Date: 20221107
  Transmission Date: 20230113
  Serious: No
  Sender: FDA-Public Use
  Company Number: US-BRISTOL-MYERS SQUIBB COMPANY-2022-128749

PATIENT
  Age: 70 Year
  Sex: Female

DRUGS (1)
  1. POMALYST [Suspect]
     Active Substance: POMALIDOMIDE
     Indication: Amyloidosis
     Dosage: TAKE 1 CAPSULE BY MOUTH DAILY ON AN EMPTY STOMACH FOR 21 DAYS FOLLOWED BY A 7 DAY REST PERIOD. DO NO
     Route: 048
     Dates: start: 20200925

REACTIONS (2)
  - Liver disorder [Unknown]
  - Off label use [Unknown]
